FAERS Safety Report 4752364-7 (Version None)
Quarter: 2005Q3

REPORT INFORMATION
  Report Type: 
  Country: None (occurrence: None)
  Receive Date: 20050825
  Receipt Date: 20050815
  Transmission Date: 20060218
  Serious: Yes (Other)
  Sender: FDA-Public Use
  Company Number: US-JNJFOC-20050805074

PATIENT
  Sex: Female

DRUGS (1)
  1. FENTANYL [Suspect]
     Route: 062
     Dates: start: 20050712, end: 20050809

REACTIONS (3)
  - DRUG WITHDRAWAL CONVULSIONS [None]
  - HEADACHE [None]
  - THERAPEUTIC RESPONSE DECREASED [None]
